FAERS Safety Report 4650586-7 (Version None)
Quarter: 2005Q2

REPORT INFORMATION
  Report Type: 
  Country: None (occurrence: None)
  Receive Date: 20050429
  Receipt Date: 20050429
  Transmission Date: 20051028
  Serious: No
  Sender: FDA-Public Use
  Company Number: None

PATIENT
  Sex: Female
  Weight: 75.2 kg

DRUGS (2)
  1. MITOMYCIN [Suspect]
     Dosage: IV 18.4 MG LAST GIVEN
     Route: 042
     Dates: end: 20050401
  2. FLUOROURACIL [Suspect]
     Dosage: IV 1840 MG GIVEN DAYS 1-4
     Route: 042
     Dates: start: 20050328, end: 20050401

REACTIONS (2)
  - PAIN [None]
  - RADIATION SKIN INJURY [None]
